FAERS Safety Report 13683120 (Version 1)
Quarter: 2017Q2

REPORT INFORMATION
  Report Type: Spontaneous
  Country: US (occurrence: US)
  Receive Date: 20170623
  Receipt Date: 20170623
  Transmission Date: 20170830
  Serious: Yes (Other)
  Sender: FDA-Public Use
  Company Number: US-PFIZER INC-2017266634

PATIENT
  Age: 57 Year
  Sex: Male

DRUGS (15)
  1. EPINEPHRINE. [Concomitant]
     Active Substance: EPINEPHRINE
     Dosage: UNK (INFUSION AT 10 UG/MIN)
     Route: 041
  2. FENTANYL. [Concomitant]
     Active Substance: FENTANYL
     Indication: GENERAL ANAESTHESIA
     Dosage: 50 UG, UNK
  3. SUCCINYLCHOLINE [Concomitant]
     Active Substance: SUCCINYLCHOLINE
     Indication: GENERAL ANAESTHESIA
     Dosage: 100 MG, UNK
  4. REMIFENTANIL [Concomitant]
     Active Substance: REMIFENTANIL
     Indication: GENERAL ANAESTHESIA
     Dosage: UNK (0.15 UG/KG/MIN)
  5. PROPOFOL. [Concomitant]
     Active Substance: PROPOFOL
     Dosage: UNK (75 UG/KG/MIN)
  6. ADENOSINE PHOSPHATE [Suspect]
     Active Substance: ADENOSINE PHOSPHATE
     Dosage: 18 MG, UNK
  7. EPINEPHRINE. [Concomitant]
     Active Substance: EPINEPHRINE
     Indication: HYPOTENSION
     Dosage: 40 UG, UNK (VIA 4 BOLUSES)
     Route: 040
  8. PHENYLEPHRINE [Concomitant]
     Active Substance: PHENYLEPHRINE\PHENYLEPHRINE HYDROCHLORIDE
     Dosage: UNK (INFUSION AT 200 UG/MIN)
     Route: 041
  9. METOPROLOL SUCCINATE. [Concomitant]
     Active Substance: METOPROLOL SUCCINATE
     Indication: HYPERTENSION
     Dosage: UNK
  10. PHENYLEPHRINE [Concomitant]
     Active Substance: PHENYLEPHRINE\PHENYLEPHRINE HYDROCHLORIDE
     Dosage: 600 UG, UNK (VIA 3 BOLUSES)
     Route: 040
  11. ADENOSINE PHOSPHATE [Suspect]
     Active Substance: ADENOSINE PHOSPHATE
     Indication: CONDUCTION DISORDER
     Dosage: 12 MG, UNK, VIA A CENTRAL VENOUS LINE
     Route: 040
  12. SALINE /00075401/ [Concomitant]
     Active Substance: SODIUM CHLORIDE
     Indication: MEAN ARTERIAL PRESSURE DECREASED
     Dosage: UNK (MULTIPLE BOLUSES)
     Route: 040
  13. PROPOFOL. [Concomitant]
     Active Substance: PROPOFOL
     Indication: GENERAL ANAESTHESIA
     Dosage: 200 MG, UNK (PRIOR TO INTUBATION)
  14. PHENYLEPHRINE [Concomitant]
     Active Substance: PHENYLEPHRINE\PHENYLEPHRINE HYDROCHLORIDE
     Indication: BLOOD PRESSURE MANAGEMENT
     Dosage: UNK (75 UG/MIN)
  15. LISINOPRIL. [Concomitant]
     Active Substance: LISINOPRIL
     Indication: HYPERTENSION
     Dosage: UNK

REACTIONS (4)
  - Hypotension [Recovered/Resolved]
  - Flushing [Recovered/Resolved]
  - Electrocardiogram PR prolongation [Recovered/Resolved]
  - Anaphylactic reaction [Recovered/Resolved]
